FAERS Safety Report 14508654 (Version 1)
Quarter: 2018Q1

REPORT INFORMATION
  Report Type: Spontaneous
  Country: US (occurrence: US)
  Receive Date: 20180209
  Receipt Date: 20180209
  Transmission Date: 20180509
  Serious: No
  Sender: FDA-Public Use
  Company Number: US-TEVA-2018-US-849442

PATIENT
  Sex: Female

DRUGS (1)
  1. NOLVADEX [Suspect]
     Active Substance: TAMOXIFEN CITRATE
     Route: 065
     Dates: start: 201708

REACTIONS (3)
  - Fungal infection [Recovering/Resolving]
  - Urinary tract infection [Recovering/Resolving]
  - Perineal pain [Recovering/Resolving]

NARRATIVE: CASE EVENT DATE: 201709
